FAERS Safety Report 25467701 (Version 1)
Quarter: 2025Q2

REPORT INFORMATION
  Report Type: Spontaneous
  Country: US (occurrence: US)
  Receive Date: 20250623
  Receipt Date: 20250623
  Transmission Date: 20250716
  Serious: No
  Sender: RANBAXY
  Company Number: US-SUN PHARMACEUTICAL INDUSTRIES LTD-2025R1-496168

PATIENT
  Age: 63 Year
  Sex: Female

DRUGS (2)
  1. GUAIFENESIN\PSEUDOEPHEDRINE HYDROCHLORIDE [Suspect]
     Active Substance: GUAIFENESIN\PSEUDOEPHEDRINE HYDROCHLORIDE
     Indication: Secretion discharge
     Route: 065
     Dates: start: 20250209, end: 20250211
  2. GUAIFENESIN\PSEUDOEPHEDRINE HYDROCHLORIDE [Suspect]
     Active Substance: GUAIFENESIN\PSEUDOEPHEDRINE HYDROCHLORIDE
     Indication: Sinus disorder

REACTIONS (3)
  - Back pain [Unknown]
  - Neck pain [Unknown]
  - Sleep inertia [Unknown]

NARRATIVE: CASE EVENT DATE: 20250213
